FAERS Safety Report 7526938-4 (Version None)
Quarter: 2011Q2

REPORT INFORMATION
  Report Type: 
  Country: None (occurrence: None)
  Receive Date: 20110606
  Receipt Date: 20040706
  Transmission Date: 20111010
  Serious: Yes (Death, Other)
  Sender: FDA-Public Use
  Company Number: PHEH2004US07278

PATIENT
  Sex: Male

DRUGS (2)
  1. PROZAC [Concomitant]
  2. CLOZAPINE [Suspect]
     Dosage: 100 MG, QD
     Route: 048

REACTIONS (2)
  - MYOCARDIAL INFARCTION [None]
  - CEREBROVASCULAR ACCIDENT [None]
